FAERS Safety Report 9433921 (Version 1)
Quarter: 2013Q3

REPORT INFORMATION
  Report Type: Spontaneous
  Country: FR (occurrence: FR)
  Receive Date: 20130801
  Receipt Date: 20130801
  Transmission Date: 20140515
  Serious: Yes (Other)
  Sender: FDA-Public Use
  Company Number: PHHY2013FR078573

PATIENT
  Age: 39 Year
  Sex: Male

DRUGS (8)
  1. BACLOFEN [Suspect]
     Indication: ALCOHOLISM
     Dosage: 20 MG, PER DAY
  2. BACLOFEN [Interacting]
     Dosage: 180  MG, PER DAY
  3. BACLOFEN [Interacting]
     Dosage: 240 MG, PER DAY
  4. RISPERIDONE [Interacting]
     Indication: BIPOLAR DISORDER
     Dosage: 1 MG, PER DAY
  5. RISPERIDONE [Interacting]
     Dosage: 2 MG, PER DAY
  6. RISPERIDONE [Interacting]
     Dosage: 4 MG, PER DAY
  7. RISPERIDONE [Interacting]
     Dosage: 6 MG, PER DAY
  8. LITHIUM [Concomitant]
     Indication: AFFECTIVE DISORDER
     Dosage: 1200 MG, PER DAY

REACTIONS (6)
  - Blood triglycerides increased [Recovered/Resolved]
  - Drug interaction [Recovered/Resolved]
  - Hyponatraemia [Unknown]
  - Weight increased [Unknown]
  - Overdose [Unknown]
  - Mania [Unknown]
